FAERS Safety Report 6787616-2 (Version None)
Quarter: 2010Q2

REPORT INFORMATION
  Report Type: 
  Country: None (occurrence: None)
  Receive Date: 20100623
  Receipt Date: 20070614
  Transmission Date: 20101027
  Serious: No
  Sender: FDA-Public Use
  Company Number: US-PFIZER INC-2007049491

PATIENT
  Sex: Male
  Weight: 73 kg

DRUGS (2)
  1. SUTENT [Suspect]
     Indication: RENAL CELL CARCINOMA
     Dates: start: 20061201
  2. ALTACE [Concomitant]

REACTIONS (2)
  - LYMPHADENOPATHY [None]
  - SWELLING FACE [None]
